FAERS Safety Report 8166877-1 (Version None)
Quarter: 2012Q1

REPORT INFORMATION
  Report Type: 
  Country: None (occurrence: None)
  Receive Date: 20120221
  Receipt Date: 20120203
  Transmission Date: 20120608
  Serious: Yes (Hospitalization)
  Sender: FDA-Public Use
  Company Number: ADR-2012274005

PATIENT
  Age: 56 Year
  Sex: Male
  Weight: 93.8946 kg

DRUGS (7)
  1. RAMIPRIL [Suspect]
     Indication: HYPERTENSION
     Dosage: 10 MG/DAY + ORAL, SINCE 4 YEARS
     Route: 048
  2. PROVENTIL INHALER (ALBUTEROL SULFATE) OD [Concomitant]
  3. ASPIRIN [Concomitant]
  4. CENTRUM [Concomitant]
  5. ALLEGRA [Concomitant]
  6. ADVAIR DISKUS 100/50 (FLUTICASONE PROPIONATE 100 MCG [Concomitant]
  7. SALMETEROL 50 MCG INHALATION POWDER) OD [Concomitant]

REACTIONS (3)
  - ANAPHYLACTIC SHOCK [None]
  - BLOOD PRESSURE INCREASED [None]
  - URTICARIA [None]
